FAERS Safety Report 24172846 (Version 2)
Quarter: 2024Q3

REPORT INFORMATION
  Report Type: Report from Study
  Country: US (occurrence: US)
  Receive Date: 20240805
  Receipt Date: 20240806
  Transmission Date: 20241016
  Serious: Yes (Hospitalization)
  Sender: ROCHE
  Company Number: US-ROCHE-10000048286

PATIENT
  Age: 4 Year
  Sex: Male
  Weight: 16.2 kg

DRUGS (1)
  1. EVRYSDI [Suspect]
     Active Substance: RISDIPLAM
     Indication: Spinal muscular atrophy
     Dosage: G-TUBE, 5.33 ML
     Route: 048
     Dates: start: 20240424

REACTIONS (2)
  - Scoliosis [Not Recovered/Not Resolved]
  - Lung disorder [Not Recovered/Not Resolved]
